FAERS Safety Report 7029582-0 (Version None)
Quarter: 2010Q4

REPORT INFORMATION
  Report Type: 
  Country: None (occurrence: None)
  Receive Date: 20101005
  Receipt Date: 20100927
  Transmission Date: 20110411
  Serious: Yes (Life-Threatening, Hospitalization)
  Sender: FDA-Public Use
  Company Number: FR-MERCK-1006FRA00091

PATIENT
  Age: 81 Year
  Sex: Female
  Weight: 61 kg

DRUGS (7)
  1. JANUVIA [Suspect]
     Indication: TYPE 2 DIABETES MELLITUS
     Route: 048
     Dates: start: 20090622, end: 20100527
  2. URAPIDIL [Concomitant]
     Indication: HYPERTENSION
     Route: 048
  3. PERINDOPRIL ARGININE [Concomitant]
     Indication: HYPERTENSION
     Route: 048
  4. CHONDROITIN SULFATE SODIUM [Concomitant]
     Indication: OSTEOARTHRITIS
     Route: 048
  5. DIOSMIN [Concomitant]
     Indication: VENOUS INSUFFICIENCY
     Route: 048
  6. LOPERAMIDE HYDROCHLORIDE [Concomitant]
     Indication: DIARRHOEA
     Route: 048
  7. CIPROFLOXACIN HYDROCHLORIDE [Concomitant]
     Indication: EYE INFECTION
     Route: 047

REACTIONS (2)
  - CYTOLYTIC HEPATITIS [None]
  - PANCREATITIS NECROTISING [None]
